FAERS Safety Report 4357837-7 (Version None)
Quarter: 2004Q2

REPORT INFORMATION
  Report Type: 
  Country: None (occurrence: None)
  Receive Date: 20040512
  Receipt Date: 20040428
  Transmission Date: 20050107
  Serious: Yes (Hospitalization)
  Sender: FDA-Public Use
  Company Number: FR-JNJFOC-20040406444

PATIENT
  Age: 25 Year
  Sex: Male

DRUGS (2)
  1. MICONAZOLE [Suspect]
     Indication: ADVERSE EVENT
     Dates: start: 20040211, end: 20040225
  2. VITAMIN C ( ) ASCORBIC ACID [Concomitant]

REACTIONS (7)
  - ARRHYTHMIA [None]
  - ATRIAL FIBRILLATION [None]
  - FALL [None]
  - HYPOKALAEMIA [None]
  - MALAISE [None]
  - SYNCOPE VASOVAGAL [None]
  - WOLFF-PARKINSON-WHITE SYNDROME [None]
